FAERS Safety Report 11404508 (Version 1)
Quarter: 2015Q3

REPORT INFORMATION
  Report Type: Spontaneous
  Country: IN (occurrence: IN)
  Receive Date: 20150821
  Receipt Date: 20150821
  Transmission Date: 20151125
  Serious: Yes (Other)
  Sender: FDA-Public Use
  Company Number: PHHY2015IN098925

PATIENT
  Age: 48 Year
  Sex: Female

DRUGS (6)
  1. MEROPENEM. [Suspect]
     Active Substance: MEROPENEM
     Indication: INFECTION
     Dosage: 500 MG, BID
     Route: 065
  2. COLIS//COLISTIMETHATE SODIUM [Interacting]
     Active Substance: COLISTIMETHATE SODIUM
     Indication: INFECTION
     Dosage: 6 MIU, QD
     Route: 065
  3. COLIS//COLISTIMETHATE SODIUM [Interacting]
     Active Substance: COLISTIMETHATE SODIUM
     Dosage: 2 MIU, QD
     Route: 065
  4. PARACETAMOL [Concomitant]
     Active Substance: ACETAMINOPHEN
     Indication: PRODUCT USED FOR UNKNOWN INDICATION
     Route: 065
  5. AMLODIPINE [Concomitant]
     Active Substance: AMLODIPINE BESYLATE
     Indication: PRODUCT USED FOR UNKNOWN INDICATION
     Route: 065
  6. ONDANSETRON [Concomitant]
     Active Substance: ONDANSETRON
     Indication: PRODUCT USED FOR UNKNOWN INDICATION
     Route: 065

REACTIONS (4)
  - Paraesthesia [Recovering/Resolving]
  - Pruritus generalised [Unknown]
  - Neurotoxicity [Recovered/Resolved]
  - Muscular weakness [Recovering/Resolving]
